FAERS Safety Report 8014002-X (Version None)
Quarter: 2011Q4

REPORT INFORMATION
  Report Type: 
  Country: None (occurrence: None)
  Receive Date: 20111229
  Receipt Date: 20111215
  Transmission Date: 20120403
  Serious: Yes (Hospitalization)
  Sender: FDA-Public Use
  Company Number: US-ROCHE-1022682

PATIENT
  Sex: Female

DRUGS (11)
  1. PYRIDOXINE HCL [Concomitant]
     Dates: start: 20110614
  2. PERTUZUMAB [Suspect]
     Indication: BREAST CANCER
     Dates: start: 20110525
  3. CLINDAMYCIN [Concomitant]
     Dates: start: 20110923
  4. DOXYCYCLINE HYCLATE [Concomitant]
     Dates: start: 20110615, end: 20110901
  5. MULTI B VITAMIN [Concomitant]
     Dates: start: 20110525, end: 20110614
  6. HERCEPTIN [Suspect]
     Indication: BREAST CANCER
     Dates: start: 20110525
  7. AMOXICILLIN [Concomitant]
     Dates: start: 20111017, end: 20111024
  8. AMBIEN [Concomitant]
     Dates: start: 20111009, end: 20111012
  9. PACLITAXEL [Suspect]
     Indication: BREAST CANCER
     Dates: start: 20110525
  10. BISACODYL [Concomitant]
     Dates: start: 20110911
  11. VICODIN [Concomitant]
     Dates: start: 20110614

REACTIONS (5)
  - LIPASE INCREASED [None]
  - ALANINE AMINOTRANSFERASE INCREASED [None]
  - ASPARTATE AMINOTRANSFERASE INCREASED [None]
  - BLOOD AMYLASE INCREASED [None]
  - ABDOMINAL PAIN [None]
